FAERS Safety Report 7546350-1 (Version None)
Quarter: 2011Q2

REPORT INFORMATION
  Report Type: 
  Country: None (occurrence: None)
  Receive Date: 20110614
  Receipt Date: 20091123
  Transmission Date: 20111010
  Serious: Yes (Other)
  Sender: FDA-Public Use
  Company Number: US-BAYER-200940861NA

PATIENT
  Age: 58 Year
  Sex: Male
  Weight: 113 kg

DRUGS (10)
  1. INSULIN [Concomitant]
     Dosage: UNK
     Route: 048
     Dates: start: 20010101
  2. TRASYLOL [Suspect]
     Indication: CORONARY ARTERY BYPASS
     Dosage: UNK
     Route: 042
     Dates: start: 20010130
  3. ACETYLSALICYLIC ACID SRT [Concomitant]
     Dosage: UNK
     Route: 048
     Dates: start: 20010101
  4. PLAVIX [Concomitant]
     Dosage: UNK
     Route: 048
     Dates: start: 20010101
  5. AVANDIA [Concomitant]
     Dosage: UNK
     Route: 048
     Dates: start: 20010101
  6. METOPROLOL [Concomitant]
     Dosage: UNK
     Route: 048
     Dates: start: 20010101
  7. MICARDIS [Concomitant]
     Dosage: UNK
     Route: 048
     Dates: start: 20010101
  8. NORVASC [Concomitant]
     Dosage: UNK
     Route: 048
     Dates: start: 20010101
  9. CRESTOR [Concomitant]
     Dosage: UNK
     Route: 048
     Dates: start: 20010101
  10. LASIX [Concomitant]
     Dosage: UNK
     Route: 048
     Dates: start: 20010101

REACTIONS (8)
  - RENAL FAILURE [None]
  - UNEVALUABLE EVENT [None]
  - FEAR [None]
  - ANHEDONIA [None]
  - INJURY [None]
  - PAIN [None]
  - ANXIETY [None]
  - DEPRESSION [None]
